FAERS Safety Report 14799551 (Version 3)
Quarter: 2018Q4

REPORT INFORMATION
  Report Type: Spontaneous
  Country: MX (occurrence: MX)
  Receive Date: 20180424
  Receipt Date: 20181109
  Transmission Date: 20190204
  Serious: Yes (Other)
  Sender: FDA-Public Use
  Company Number: MX-009507513-1704MEX011169

PATIENT
  Age: 26 Year
  Sex: Male
  Weight: 118 kg

DRUGS (1)
  1. KEYTRUDA [Suspect]
     Active Substance: PEMBROLIZUMAB
     Indication: METASTATIC MALIGNANT MELANOMA
     Dosage: 2 MG/KG , Q3W
     Dates: start: 201602

REACTIONS (46)
  - Nasopharyngitis [Recovered/Resolved]
  - Blood alkaline phosphatase increased [Recovered/Resolved]
  - Nausea [Unknown]
  - Gastrointestinal pain [Recovered/Resolved]
  - Vitiligo [Not Recovered/Not Resolved]
  - Scar [Unknown]
  - Aspartate aminotransferase increased [Unknown]
  - Somnolence [Recovered/Resolved]
  - Cough [Recovered/Resolved]
  - Arthralgia [Recovered/Resolved]
  - Vitiligo [Not Recovered/Not Resolved]
  - Skin disorder [Recovered/Resolved]
  - Tissue infiltration [Unknown]
  - Abdominal distension [Recovered/Resolved]
  - Vitiligo [Not Recovered/Not Resolved]
  - Cough [Recovered/Resolved]
  - Hemiparaesthesia [Recovered/Resolved]
  - Dizziness [Unknown]
  - White blood cell count increased [Unknown]
  - Bronchospasm [Recovered/Resolved]
  - Abdominal distension [Unknown]
  - Discomfort [Recovered/Resolved]
  - Rhinorrhoea [Recovered/Resolved]
  - Blood lactate dehydrogenase increased [Unknown]
  - Wheezing [Recovered/Resolved]
  - Haemoglobin increased [Unknown]
  - Flatulence [Recovered/Resolved]
  - Pharyngeal erythema [Recovered/Resolved]
  - Chest pain [Recovered/Resolved]
  - Blood lactate dehydrogenase increased [Not Recovered/Not Resolved]
  - Haematocrit decreased [Unknown]
  - Abdominal distension [Recovered/Resolved]
  - Red cell distribution width decreased [Unknown]
  - Photopsia [Unknown]
  - Urinary tract infection [Recovered/Resolved]
  - Haematocrit increased [Unknown]
  - Breath sounds abnormal [Recovered/Resolved]
  - Rhinorrhoea [Unknown]
  - Red blood cell count increased [Unknown]
  - Pharyngeal erythema [Recovered/Resolved]
  - Red blood cell count increased [Not Recovered/Not Resolved]
  - Skin lesion [Unknown]
  - Bilirubin conjugated increased [Unknown]
  - Alanine aminotransferase increased [Unknown]
  - White blood cell count increased [Not Recovered/Not Resolved]
  - Monocyte count increased [Unknown]

NARRATIVE: CASE EVENT DATE: 201612
